FAERS Safety Report 5739502-4 (Version None)
Quarter: 2008Q2

REPORT INFORMATION
  Report Type: 
  Country: None (occurrence: None)
  Receive Date: 20080515
  Receipt Date: 20080512
  Transmission Date: 20081010
  Serious: Yes (Other)
  Sender: FDA-Public Use
  Company Number: PHHY2008SI07642

PATIENT
  Age: 60 Year
  Sex: Female

DRUGS (3)
  1. DIOVAN HCT [Suspect]
     Dosage: 160/12.5 MG
     Dates: start: 20080401, end: 20080505
  2. DIOVAN [Suspect]
     Dosage: 80 MG
     Dates: start: 20051001
  3. DIOVAN [Suspect]
     Dosage: 160 MG
     Dates: start: 20060201

REACTIONS (7)
  - COUGH [None]
  - DYSPHONIA [None]
  - DYSPNOEA [None]
  - FATIGUE [None]
  - JOINT SWELLING [None]
  - TACHYCARDIA [None]
  - WEIGHT INCREASED [None]
